FAERS Safety Report 15150304 (Version 1)
Quarter: 2018Q3

REPORT INFORMATION
  Report Type: Spontaneous
  Country: IT (occurrence: IT)
  Receive Date: 20180716
  Receipt Date: 20180716
  Transmission Date: 20181010
  Serious: Yes (Hospitalization)
  Sender: FDA-Public Use
  Company Number: IT-TEVA-2018-IT-927071

PATIENT
  Age: 71 Year
  Sex: Male

DRUGS (4)
  1. RYTMONORM [Suspect]
     Active Substance: PROPAFENONE
     Indication: ATRIAL FIBRILLATION
     Route: 048
     Dates: start: 20170624, end: 20170624
  2. DELTACORTENE 5 MG COMPRESSE [Concomitant]
     Active Substance: PREDNISONE
     Route: 048
  3. NEXIUM 20 MG COMPRESSE GASTRORESISTENTI [Concomitant]
     Route: 048
  4. COUMADIN [Concomitant]
     Active Substance: WARFARIN SODIUM
     Route: 048

REACTIONS (2)
  - Syncope [Unknown]
  - Injury [Unknown]

NARRATIVE: CASE EVENT DATE: 20170624
